FAERS Safety Report 9991906 (Version 1)
Quarter: 2014Q1

REPORT INFORMATION
  Report Type: Spontaneous
  Country: US (occurrence: US)
  Receive Date: 20140310
  Receipt Date: 20140310
  Transmission Date: 20141002
  Serious: Yes (Hospitalization)
  Sender: FDA-Public Use
  Company Number: US-BAYER-2014-033986

PATIENT
  Age: 37 Year
  Sex: Female
  Weight: 58.96 kg

DRUGS (21)
  1. YAZ [Suspect]
  2. OCELLA [Suspect]
  3. ACYCLOVIR [ACICLOVIR] [Concomitant]
     Dosage: 400 MG,5 TIMES A DAY FOR 5 DAYS
  4. HYDROQUINONE [Concomitant]
     Dosage: 4 UNK, EVERY BEDTIME
  5. CYCLOBENZAPRINE [Concomitant]
     Dosage: 10 MG, TID
  6. PANTOPRAZOLE [Concomitant]
     Indication: GASTRITIS
     Dosage: 40 MG, BID
  7. ZOFRAN [Concomitant]
     Indication: NAUSEA
     Dosage: 8 MG, TID AS NEEDED
  8. CIPRO [Concomitant]
     Indication: URINARY TRACT INFECTION
     Dosage: 500 MG, BID
  9. PREDNISONE [Concomitant]
     Dosage: 20 MG,EVERY 12 HOURS, THEN 10 [TAPER]
  10. METAXALONE [Concomitant]
     Indication: MUSCLE SPASMS
     Dosage: 800 MG, TID
  11. NEURONTIN [Concomitant]
  12. MULTIVITAMIN [Concomitant]
  13. OSCAL [Concomitant]
  14. BENADRYL [Concomitant]
  15. FLAGYL [Concomitant]
  16. METFORMIN [Concomitant]
  17. CARAFATE [Concomitant]
  18. PEPCID [Concomitant]
  19. OXYIR [Concomitant]
  20. METOPROLOL [Concomitant]
  21. ONDANSETRON [Concomitant]
     Indication: NAUSEA

REACTIONS (2)
  - Cholecystitis chronic [None]
  - Deep vein thrombosis [None]
